FAERS Safety Report 16163860 (Version 1)
Quarter: 2019Q2

REPORT INFORMATION
  Report Type: Spontaneous
  Country: US (occurrence: US)
  Receive Date: 20190304
  Receipt Date: 20190304
  Transmission Date: 20190711
  Serious: No
  Sender: FDA-Public Use
  Company Number: None

PATIENT
  Age: 59 Year
  Sex: Female
  Weight: 67.13 kg

DRUGS (2)
  1. ESTRADIOL VAGINAL INSERTS [Suspect]
     Active Substance: ESTRADIOL
     Indication: URINARY TRACT DISORDER PROPHYLAXIS
     Route: 067
  2. ESTRADIOL VAGINAL INSERTS [Suspect]
     Active Substance: ESTRADIOL
     Indication: INFECTION PROPHYLAXIS
     Route: 067

REACTIONS (3)
  - Incorrect dose administered [None]
  - Product solubility abnormal [None]
  - Hormone level abnormal [None]

NARRATIVE: CASE EVENT DATE: 20190211
